FAERS Safety Report 17702410 (Version 2)
Quarter: 2020Q2

REPORT INFORMATION
  Report Type: Spontaneous
  Country: US (occurrence: US)
  Receive Date: 20200423
  Receipt Date: 20200621
  Transmission Date: 20200714
  Serious: No
  Sender: FDA-Public Use
  Company Number: US-GLAXOSMITHKLINE-US2020AMR065514

PATIENT
  Sex: Female

DRUGS (4)
  1. ZEJULA [Suspect]
     Active Substance: NIRAPARIB
     Dosage: 200 MG, QD
     Dates: start: 20200210
  2. ZEJULA [Suspect]
     Active Substance: NIRAPARIB
     Dosage: 200 MG, QD
     Dates: start: 20200413
  3. ZEJULA [Suspect]
     Active Substance: NIRAPARIB
     Dosage: 100 MG
     Dates: start: 2020
  4. ZEJULA [Suspect]
     Active Substance: NIRAPARIB
     Indication: OVARIAN CANCER
     Dosage: 200 MG, QD
     Dates: start: 20200206

REACTIONS (6)
  - Pruritus [Unknown]
  - Ageusia [Unknown]
  - Platelet count decreased [Unknown]
  - Adverse drug reaction [Unknown]
  - Photosensitivity reaction [Unknown]
  - Drug intolerance [Unknown]
